FAERS Safety Report 7070465-8 (Version None)
Quarter: 2010Q4

REPORT INFORMATION
  Report Type: 
  Country: None (occurrence: None)
  Receive Date: 20101028
  Receipt Date: 20101028
  Transmission Date: 20110411
  Serious: Yes (Life-Threatening, Hospitalization)
  Sender: FDA-Public Use
  Company Number: None

PATIENT
  Age: 53 Year
  Sex: Male
  Weight: 90.7194 kg

DRUGS (1)
  1. BACITRACIN ZINC [Suspect]
     Indication: EXCORIATION
     Dosage: 0.9 G ONE TIME TOPICAL
     Route: 061
     Dates: start: 20100420

REACTIONS (2)
  - PHARYNGEAL OEDEMA [None]
  - SWELLING [None]
